FAERS Safety Report 11810639 (Version 1)
Quarter: 2015Q4

REPORT INFORMATION
  Report Type: Spontaneous
  Country: JP (occurrence: JP)
  Receive Date: 20151208
  Receipt Date: 20151208
  Transmission Date: 20160305
  Serious: Yes (Other)
  Sender: FDA-Public Use
  Company Number: JP-OTSUKA-2015_015679

PATIENT

DRUGS (4)
  1. SAMSCA [Suspect]
     Active Substance: TOLVAPTAN
     Indication: CARDIAC FAILURE CHRONIC
     Dosage: 3.75 MG, DAILY DOSE
     Route: 048
     Dates: start: 20150718
  2. DAITALIC [Suspect]
     Active Substance: AZOSEMIDE
     Indication: PRODUCT USED FOR UNKNOWN INDICATION
     Dosage: 30 MG, DAILY DOSE
     Route: 048
     Dates: start: 20150718, end: 20151125
  3. SAMSCA [Suspect]
     Active Substance: TOLVAPTAN
     Dosage: 3.75 MG, DAILY DOSE
     Route: 048
     Dates: start: 20150925, end: 20151125
  4. SAMSCA [Suspect]
     Active Substance: TOLVAPTAN
     Dosage: 7.5 MG, DAILY DOSE
     Route: 048
     Dates: start: 20150814, end: 20150925

REACTIONS (1)
  - Hypoglycaemia [Recovering/Resolving]

NARRATIVE: CASE EVENT DATE: 20151124
